FAERS Safety Report 8289054-2 (Version None)
Quarter: 2012Q2

REPORT INFORMATION
  Report Type: 
  Country: None (occurrence: None)
  Receive Date: 20120417
  Receipt Date: 20120405
  Transmission Date: 20120825
  Serious: Yes (Life-Threatening, Hospitalization, Other)
  Sender: FDA-Public Use
  Company Number: CA-BAYER-2012-033210

PATIENT
  Age: 67 Year
  Sex: Male
  Weight: 105 kg

DRUGS (3)
  1. AVELOX [Suspect]
     Dosage: 400 MG, QD
     Route: 048
  2. AVELOX [Suspect]
     Dosage: 400 MG, QD
     Route: 048
  3. SILDENAFIL [Concomitant]

REACTIONS (11)
  - ACQUIRED EPIDERMOLYSIS BULLOSA [None]
  - DEPRESSED LEVEL OF CONSCIOUSNESS [None]
  - HAEMATEMESIS [None]
  - LIVER TRANSPLANT [None]
  - MECHANICAL VENTILATION [None]
  - HEPATIC FAILURE [None]
  - DERMATITIS BULLOUS [None]
  - MALAISE [None]
  - MALLORY-WEISS SYNDROME [None]
  - PEMPHIGOID [None]
  - RENAL FAILURE ACUTE [None]
